FAERS Safety Report 6156776-9 (Version None)
Quarter: 2009Q2

REPORT INFORMATION
  Report Type: 
  Country: None (occurrence: None)
  Receive Date: 20090416
  Receipt Date: 20090407
  Transmission Date: 20091009
  Serious: Yes (Hospitalization, Other)
  Sender: FDA-Public Use
  Company Number: PHHY2009FR13313

PATIENT
  Sex: Female
  Weight: 57 kg

DRUGS (6)
  1. TRILEPTAL [Suspect]
     Dosage: 150 MG, BID
     Route: 048
     Dates: start: 20040115, end: 20090318
  2. ESCITALOPRAM [Interacting]
     Dosage: 1 EACH MORNING
  3. KEPPRA [Concomitant]
     Dosage: 1 TABLET EACH MORNING AND 2 EACH EVENING
  4. DIPIPERON [Concomitant]
     Dosage: XV EACH MORNING, X EACH MIDDAY AND XXV EACH EVENING
  5. FLUANXOL [Concomitant]
     Dosage: 20 MG, TIW
  6. LEPTICUR [Concomitant]
     Dosage: 1 EACH MORNING

REACTIONS (7)
  - BLOOD CREATINE PHOSPHOKINASE INCREASED [None]
  - BLOOD POTASSIUM DECREASED [None]
  - BLOOD PRESSURE INCREASED [None]
  - CONVULSION [None]
  - HYPONATRAEMIA [None]
  - NAUSEA [None]
  - VOMITING [None]
